FAERS Safety Report 5964408-5 (Version None)
Quarter: 2008Q4

REPORT INFORMATION
  Report Type: 
  Country: None (occurrence: None)
  Receive Date: 20081124
  Receipt Date: 20081119
  Transmission Date: 20090506
  Serious: Yes (Other)
  Sender: FDA-Public Use
  Company Number: US-PFIZER INC-2008097981

PATIENT
  Sex: Male
  Weight: 98 kg

DRUGS (4)
  1. CELEBREX [Suspect]
     Indication: PAIN
     Route: 048
     Dates: start: 20080601
  2. CELEBREX [Suspect]
     Indication: INFLAMMATION
  3. LISINOPRIL [Concomitant]
  4. VYTORIN [Concomitant]

REACTIONS (3)
  - INFLAMMATION [None]
  - PAIN [None]
  - TRIGGER FINGER [None]
